FAERS Safety Report 5806059-9 (Version None)
Quarter: 2008Q3

REPORT INFORMATION
  Report Type: 
  Country: None (occurrence: None)
  Receive Date: 20080710
  Receipt Date: 20080707
  Transmission Date: 20090109
  Serious: No
  Sender: FDA-Public Use
  Company Number: GB-ASTRAZENECA-2008GB01289

PATIENT

DRUGS (1)
  1. SEROQUEL [Suspect]
     Dosage: HIGH DOSE
     Route: 048

REACTIONS (1)
  - ANAEMIA [None]
